FAERS Safety Report 5737685-3 (Version None)
Quarter: 2008Q2

REPORT INFORMATION
  Report Type: 
  Country: None (occurrence: None)
  Receive Date: 20080512
  Receipt Date: 20080512
  Transmission Date: 20081010
  Serious: Yes (Hospitalization)
  Sender: FDA-Public Use
  Company Number: None

PATIENT
  Age: 39 Year
  Sex: Female
  Weight: 51.2565 kg

DRUGS (1)
  1. DIGITEK  0.125 MG  MYLAN BERT [Suspect]
     Indication: HEART DISEASE CONGENITAL
     Dosage: ONE TABLET  ONCE DAILY  PO
     Route: 048
     Dates: start: 20071211, end: 20071221

REACTIONS (5)
  - ANOREXIA [None]
  - ASTHENIA [None]
  - CHEST DISCOMFORT [None]
  - DIZZINESS [None]
  - FEELING ABNORMAL [None]
